FAERS Safety Report 4326331-1 (Version None)
Quarter: 2004Q1

REPORT INFORMATION
  Report Type: 
  Country: None (occurrence: None)
  Receive Date: 20040323
  Receipt Date: 20040309
  Transmission Date: 20041129
  Serious: Yes (Other)
  Sender: FDA-Public Use
  Company Number: US-JNJFOC-20031200381

PATIENT
  Age: 71 Year
  Sex: Male
  Weight: 92.0802 kg

DRUGS (10)
  1. REMICADE [Suspect]
     Indication: RHEUMATOID ARTHRITIS
     Dosage: 300 MG, INTRAVENOUS
     Route: 042
     Dates: start: 20031201
  2. METHOTREXATE SODIUM [Concomitant]
  3. SULFAZIDE (SULFASALAZINE) [Concomitant]
  4. NEXIUM [Concomitant]
  5. PROSCAR [Concomitant]
  6. HYZAAR [Concomitant]
  7. POTASSIUM (POTASSIUM) [Concomitant]
  8. FOLIC ACID [Concomitant]
  9. HYTRIN [Concomitant]
  10. ENBREL [Concomitant]

REACTIONS (7)
  - BLOOD PRESSURE DECREASED [None]
  - DIZZINESS [None]
  - ERYTHEMA [None]
  - FEELING ABNORMAL [None]
  - FLUSHING [None]
  - HYPERHIDROSIS [None]
  - VISION BLURRED [None]
